FAERS Safety Report 8921786 (Version 2)
Quarter: 2013Q3

REPORT INFORMATION
  Report Type: Report from Study
  Country: JP (occurrence: JP)
  Receive Date: 20121121
  Receipt Date: 20130708
  Transmission Date: 20140515
  Serious: Yes (Hospitalization, Other)
  Sender: FDA-Public Use
  Company Number: JP-VERTEX PHARMACEUTICAL INC.-AE-2012-005901

PATIENT
  Age: 64 Year
  Sex: Female

DRUGS (11)
  1. URSO [Concomitant]
     Dosage: 300 MG, QD
     Route: 048
     Dates: start: 20120331
  2. NEO-MINOPHAGEN C [Concomitant]
     Dosage: 60 ML, QD
     Route: 042
  3. VX-950 (TELAPREVIR) [Suspect]
     Indication: CHRONIC HEPATITIS C
     Dosage: 2250 MG, QD
     Route: 048
     Dates: start: 20120306, end: 20120417
  4. VX-950 (TELAPREVIR) [Suspect]
     Dosage: 1500 UNK, UNK
     Dates: start: 20120418, end: 20120421
  5. RIBAVIRIN [Suspect]
     Indication: CHRONIC HEPATITIS C
     Dosage: 600 MG, QD
     Route: 048
     Dates: start: 20120306, end: 20120325
  6. RIBAVIRIN [Suspect]
     Dosage: 400 MG, QD
     Route: 048
     Dates: start: 20120326, end: 20120417
  7. RIBAVIRIN [Suspect]
     Dosage: 200 MG, QD
     Route: 048
     Dates: start: 20120418, end: 20120421
  8. RIBAVIRIN [Suspect]
     Dosage: 200 MG, QD
     Route: 048
     Dates: start: 20120515
  9. PEGINTERFERON ALFA-2B [Suspect]
     Indication: CHRONIC HEPATITIS C
     Dosage: 1.5 ?G/KG, QW
     Route: 058
     Dates: start: 20120306, end: 20120421
  10. PEGINTERFERON ALFA-2B [Suspect]
     Dosage: 1.5 ?G/KG, QW
     Route: 058
     Dates: start: 20120515
  11. URSO [Concomitant]
     Dosage: 900 MG, QD
     Route: 048
     Dates: end: 20120330

REACTIONS (3)
  - Decreased appetite [Recovered/Resolved]
  - Malaise [Recovered/Resolved]
  - Anaemia [Recovered/Resolved]
